FAERS Safety Report 18448215 (Version 2)
Quarter: 2020Q4

REPORT INFORMATION
  Report Type: Spontaneous
  Country: FR (occurrence: FR)
  Receive Date: 20201031
  Receipt Date: 20201210
  Transmission Date: 20210114
  Serious: Yes (Other)
  Sender: FDA-Public Use
  Company Number: FR-TEVA-2020-FR-1842678

PATIENT
  Age: 60 Year
  Sex: Female

DRUGS (2)
  1. LEVOFLOXACINE [Suspect]
     Active Substance: LEVOFLOXACIN
     Indication: INFECTION
     Dosage: 750 MG
     Route: 048
     Dates: start: 20200910, end: 20201015
  2. RIFADINE [Suspect]
     Active Substance: RIFAMPIN
     Indication: INFECTION
     Dosage: 900 MG
     Route: 048
     Dates: start: 20200910, end: 20201015

REACTIONS (2)
  - Neutropenia [Recovered/Resolved]
  - Leukopenia [Recovered/Resolved]

NARRATIVE: CASE EVENT DATE: 20200930
